FAERS Safety Report 5067876-9 (Version None)
Quarter: 2006Q3

REPORT INFORMATION
  Report Type: 
  Country: None (occurrence: None)
  Receive Date: 20060731
  Receipt Date: 20060719
  Transmission Date: 20061208
  Serious: No
  Sender: FDA-Public Use
  Company Number: APP200600207

PATIENT
  Age: 47 Year
  Sex: Female

DRUGS (1)
  1. AMPICILLIN [Suspect]
     Indication: INFECTION
     Dosage: INTRAVENOUS
     Route: 042

REACTIONS (3)
  - BRADYCARDIA [None]
  - HYPERSENSITIVITY [None]
  - HYPOTENSION [None]
